FAERS Safety Report 12496677 (Version 1)
Quarter: 2016Q2

REPORT INFORMATION
  Report Type: Report from Study
  Country: US (occurrence: US)
  Receive Date: 20160624
  Receipt Date: 20160624
  Transmission Date: 20160815
  Serious: Yes (Hospitalization)
  Sender: FDA-Public Use
  Company Number: US-ACTELION-A-US2016-138266

PATIENT
  Age: 53 Year
  Sex: Female

DRUGS (1)
  1. OPSUMIT [Suspect]
     Active Substance: MACITENTAN
     Indication: PULMONARY ARTERIAL HYPERTENSION
     Dosage: 10 MG, QD
     Route: 048
     Dates: start: 20150506, end: 20160608

REACTIONS (3)
  - Metabolic surgery [Recovering/Resolving]
  - Weight decreased [Recovering/Resolving]
  - Pre-existing condition improved [Recovering/Resolving]

NARRATIVE: CASE EVENT DATE: 201511
